FAERS Safety Report 14495186 (Version 6)
Quarter: 2018Q2

REPORT INFORMATION
  Report Type: Spontaneous
  Country: US (occurrence: US)
  Receive Date: 20180206
  Receipt Date: 20180501
  Transmission Date: 20180711
  Serious: Yes (Hospitalization)
  Sender: FDA-Public Use
  Company Number: US-ACTELION-A-NJ2018-167085

PATIENT
  Age: 17 Year
  Sex: Female

DRUGS (7)
  1. MIDAZOLAM [Concomitant]
     Active Substance: MIDAZOLAM HYDROCHLORIDE
     Dosage: 2 MG/2 ML, ONE DOSE AS DIRECTED
     Dates: start: 20121101
  2. ZAVESCA [Suspect]
     Active Substance: MIGLUSTAT
     Indication: NIEMANN-PICK DISEASE
     Dosage: 100 MG, TID
     Route: 048
     Dates: start: 20121031
  3. ACIDOPHILUS [Concomitant]
     Active Substance: LACTOBACILLUS ACIDOPHILUS
     Dosage: 1 DOSE AS DIRECTED
     Dates: start: 20121101
  4. ADVIL [Concomitant]
     Active Substance: IBUPROFEN
     Dosage: 100 MG, QAM
     Route: 048
     Dates: start: 20121101
  5. COLON CLEANSER NATURAL DETOX FORMULA [Concomitant]
     Dosage: 1 DOSE AS DIRECTED
     Dates: start: 20121101
  6. ZAVESCA [Suspect]
     Active Substance: MIGLUSTAT
     Dosage: 100 MG, BID
     Route: 048
     Dates: start: 20180126
  7. GENISTEIN [Concomitant]
     Active Substance: GENISTEIN
     Dosage: 1 DOSE AS DIRECTED
     Dates: start: 20151027

REACTIONS (7)
  - Wisdom teeth removal [Unknown]
  - Drug dose omission [Recovered/Resolved]
  - Dysphagia [Unknown]
  - Diarrhoea [Unknown]
  - Ill-defined disorder [Unknown]
  - Dystonia [Unknown]
  - Malaise [Unknown]

NARRATIVE: CASE EVENT DATE: 201712
